FAERS Safety Report 9154370 (Version 1)
Quarter: 2013Q1

REPORT INFORMATION
  Report Type: Spontaneous
  Country: GB (occurrence: None)
  Receive Date: 20130307
  Receipt Date: 20130307
  Transmission Date: 20140127
  Serious: Yes (Death, Other)
  Sender: FDA-Public Use
  Company Number: 2013P1002802

PATIENT
  Sex: 0

DRUGS (3)
  1. DEXAMETHASONE [Suspect]
     Indication: ACUTE LYMPHOCYTIC LEUKAEMIA
  2. METHOTREXATE [Concomitant]
  3. VINCRISTINE ASPARAGINASE [Concomitant]

REACTIONS (1)
  - Toxicity to various agents [None]
